FAERS Safety Report 24174737 (Version 1)
Quarter: 2024Q3

REPORT INFORMATION
  Report Type: Report from Study
  Country: NL (occurrence: NL)
  Receive Date: 20240805
  Receipt Date: 20240805
  Transmission Date: 20241017
  Serious: Yes (Hospitalization)
  Sender: BIOVITRUM
  Company Number: NL-AstraZeneca-2023A091119

PATIENT
  Sex: Female
  Weight: 6.8 kg

DRUGS (2)
  1. SYNAGIS [Suspect]
     Active Substance: PALIVIZUMAB
     Indication: Premature baby
     Dosage: MONTHLY
     Route: 030
     Dates: start: 20221028
  2. FERROFUMARAAT SUSP 20MG/ML [Concomitant]
     Indication: Product used for unknown indication

REACTIONS (1)
  - Coronavirus infection [Not Recovered/Not Resolved]
